FAERS Safety Report 10073187 (Version 1)
Quarter: 2014Q2

REPORT INFORMATION
  Report Type: Report from Study
  Country: US (occurrence: US)
  Receive Date: 20140411
  Receipt Date: 20140411
  Transmission Date: 20141212
  Serious: Yes (Other)
  Sender: FDA-Public Use
  Company Number: US-ACTELION-A-NJ2014-97093

PATIENT
  Age: 78 Year
  Sex: Female

DRUGS (1)
  1. VELETRI [Suspect]
     Indication: PULMONARY ARTERIAL HYPERTENSION
     Dosage: 25 UNK, UNK
     Route: 042
     Dates: start: 20130627

REACTIONS (2)
  - Uterine cancer [Unknown]
  - Flushing [Unknown]
